FAERS Safety Report 4732268-6 (Version None)
Quarter: 2005Q3

REPORT INFORMATION
  Report Type: 
  Country: None (occurrence: None)
  Receive Date: 20050726
  Receipt Date: 20040525
  Transmission Date: 20060218
  Serious: Yes (Hospitalization)
  Sender: FDA-Public Use
  Company Number: 04FRA0101

PATIENT
  Sex: Male

DRUGS (11)
  1. AGGRASTAT [Suspect]
     Indication: HAEMATOMA
     Dates: start: 20040322, end: 20040328
  2. AGGRASTAT [Suspect]
     Dates: start: 20040330, end: 20040401
  3. ENOXAPARIN SODIUM [Suspect]
     Dates: start: 20040329
  4. POWD ASPIRIN LYSINE [Suspect]
     Dates: start: 20040329
  5. POWD ASPIRIN LYSINE [Suspect]
     Dates: start: 20040328
  6. AGGRASTAT [Suspect]
     Dosage: INTRAVENOUS
     Route: 042
     Dates: start: 20040330, end: 20040401
  7. AGGRASTAT [Suspect]
     Dosage: INTRAVENOUS
     Route: 042
     Dates: start: 20040322, end: 20040328
  8. PRAVASTATIN SODIUM [Concomitant]
  9. RILMENIDINE PHOSPHATE [Concomitant]
  10. SPIRONOLACTONE [Concomitant]
  11. TERBUTALINE SULFATE [Concomitant]

REACTIONS (1)
  - HAEMATOMA [None]
